FAERS Safety Report 11734802 (Version 6)
Quarter: 2016Q1

REPORT INFORMATION
  Report Type: Spontaneous
  Country: US (occurrence: US)
  Receive Date: 20151113
  Receipt Date: 20160316
  Transmission Date: 20160525
  Serious: Yes (Hospitalization)
  Sender: FDA-Public Use
  Company Number: US-PFIZER INC-2015385747

PATIENT
  Age: 55 Year
  Sex: Female
  Weight: 68 kg

DRUGS (3)
  1. EFFEXOR XR [Suspect]
     Active Substance: VENLAFAXINE HYDROCHLORIDE
     Indication: AFFECTIVE DISORDER
     Dosage: 150 MG, 1X/DAY (EVERY NIGHT)
     Route: 048
     Dates: start: 20151112
  2. WARFARIN [Concomitant]
     Active Substance: WARFARIN
     Dosage: 5 MG, 1X/DAY
  3. EFFEXOR XR [Suspect]
     Active Substance: VENLAFAXINE HYDROCHLORIDE
     Indication: DEPRESSION
     Dosage: 75 MG, 1X/DAY (EVERY NIGHT)
     Dates: start: 201510, end: 20151111

REACTIONS (5)
  - Somnolence [Not Recovered/Not Resolved]
  - Expired product administered [Not Recovered/Not Resolved]
  - Intentional product misuse [Unknown]
  - Drug ineffective [Unknown]
  - Hypersomnia [Unknown]

NARRATIVE: CASE EVENT DATE: 20151108
